FAERS Safety Report 16015908 (Version 1)
Quarter: 2019Q1

REPORT INFORMATION
  Report Type: Spontaneous
  Country: US (occurrence: US)
  Receive Date: 20190228
  Receipt Date: 20190228
  Transmission Date: 20190418
  Serious: Yes (Other)
  Sender: FDA-Public Use
  Company Number: US-ASTRAZENECA-2019SE30179

PATIENT

DRUGS (2)
  1. IBRANCE [Suspect]
     Active Substance: PALBOCICLIB
     Route: 048
     Dates: start: 20170718
  2. FASLODEX [Suspect]
     Active Substance: FULVESTRANT
     Route: 030
     Dates: start: 20170718

REACTIONS (7)
  - Decreased appetite [Unknown]
  - Back pain [Unknown]
  - Nephrolithiasis [Unknown]
  - Pain in extremity [Unknown]
  - Bone pain [Unknown]
  - Alopecia [Unknown]
  - Diarrhoea [Unknown]
